FAERS Safety Report 11903722 (Version 1)
Quarter: 2016Q1

REPORT INFORMATION
  Report Type: Report from Study
  Country: US (occurrence: US)
  Receive Date: 20160108
  Receipt Date: 20160108
  Transmission Date: 20160526
  Serious: No
  Sender: FDA-Public Use
  Company Number: US-ABBVIE-15P-163-1518697-00

PATIENT
  Sex: Female

DRUGS (1)
  1. VIEKIRA PAK [Suspect]
     Active Substance: DASABUVIR\OMBITASVIR\PARITAPREVIR\RITONAVIR
     Indication: CHRONIC HEPATITIS C
     Dosage: 12.5MG/75MG/50MG 2 TABLETS IN AM, DASABUVIR TABLETS 250MG
     Route: 048
     Dates: start: 20150919

REACTIONS (6)
  - Peripheral coldness [Unknown]
  - Insomnia [Unknown]
  - Dry mouth [Unknown]
  - Anaemia [Unknown]
  - Headache [Unknown]
  - Chromaturia [Unknown]
